FAERS Safety Report 6080566-9 (Version None)
Quarter: 2009Q1

REPORT INFORMATION
  Report Type: 
  Country: None (occurrence: None)
  Receive Date: 20090217
  Receipt Date: 20090212
  Transmission Date: 20090719
  Serious: Yes (Hospitalization)
  Sender: FDA-Public Use
  Company Number: B0556948A

PATIENT
  Age: 81 Year
  Sex: Female
  Weight: 52 kg

DRUGS (7)
  1. VALTREX [Suspect]
     Indication: HERPES ZOSTER
     Dosage: 1000MG THREE TIMES PER DAY
     Route: 048
     Dates: start: 20090124, end: 20090127
  2. NORVASC [Concomitant]
     Dosage: 5MG PER DAY
     Route: 048
  3. ACTOS [Concomitant]
     Dosage: 15MG PER DAY
     Route: 048
  4. AMARYL [Concomitant]
     Dosage: 1MG PER DAY
     Route: 048
  5. ASPIRIN [Concomitant]
     Dosage: 100MG PER DAY
     Route: 048
  6. LIPITOR [Concomitant]
     Dosage: 5MG PER DAY
     Route: 048
  7. FRANDOL [Concomitant]
     Route: 048

REACTIONS (4)
  - DELIRIUM [None]
  - MALAISE [None]
  - RENAL FAILURE ACUTE [None]
  - VOMITING [None]
